FAERS Safety Report 25842364 (Version 2)
Quarter: 2025Q3

REPORT INFORMATION
  Report Type: Spontaneous
  Country: US (occurrence: US)
  Receive Date: 20250924
  Receipt Date: 20250929
  Transmission Date: 20251021
  Serious: No
  Sender: PFIZER
  Company Number: US-PFIZER INC-202500187466

PATIENT
  Age: 39 Year
  Sex: Male
  Weight: 120.18 kg

DRUGS (3)
  1. DEPO-TESTOSTERONE [Suspect]
     Active Substance: TESTOSTERONE CYPIONATE
     Indication: Blood testosterone
     Dosage: 100 MG, WEEKLY (1000MG/10ML VIAL)
  2. OMEPRAZOLE [Concomitant]
     Active Substance: OMEPRAZOLE
  3. CIALIS [Concomitant]
     Active Substance: TADALAFIL

REACTIONS (2)
  - Product leakage [Unknown]
  - Product dose omission issue [Unknown]
